FAERS Safety Report 8276488-5 (Version None)
Quarter: 2012Q2

REPORT INFORMATION
  Report Type: 
  Country: None (occurrence: None)
  Receive Date: 20120412
  Receipt Date: 20120409
  Transmission Date: 20120825
  Serious: Yes (Death)
  Sender: FDA-Public Use
  Company Number: JP-SANOFI-AVENTIS-2012SA024865

PATIENT
  Age: 78 Year
  Sex: Male
  Weight: 47 kg

DRUGS (6)
  1. FLUOROURACIL [Concomitant]
     Dates: start: 20110706, end: 20110810
  2. OXALIPLATIN [Suspect]
     Indication: COLON CANCER
     Route: 041
     Dates: start: 20110706, end: 20110706
  3. OXALIPLATIN [Suspect]
     Route: 041
     Dates: start: 20110810, end: 20110810
  4. LEUCOVORIN CALCIUM [Concomitant]
     Dates: start: 20110706, end: 20110810
  5. FLUOROURACIL [Concomitant]
     Dates: start: 20110706, end: 20110810
  6. OXALIPLATIN [Suspect]
     Route: 041
     Dates: start: 20110727, end: 20110727

REACTIONS (4)
  - CARDIAC FAILURE [None]
  - NEUTROPHIL COUNT DECREASED [None]
  - MALAISE [None]
  - WHITE BLOOD CELL COUNT DECREASED [None]
